FAERS Safety Report 25276193 (Version 1)
Quarter: 2025Q2

REPORT INFORMATION
  Report Type: Spontaneous
  Country: US (occurrence: US)
  Receive Date: 20250507
  Receipt Date: 20250507
  Transmission Date: 20250716
  Serious: Yes (Other)
  Sender: RANBAXY
  Company Number: US-SUN PHARMACEUTICAL INDUSTRIES LTD-2025R1-506293

PATIENT
  Age: 45 Year
  Sex: Female

DRUGS (3)
  1. METHYLPHENIDATE [Suspect]
     Active Substance: METHYLPHENIDATE
     Indication: Central pain syndrome
     Route: 065
  2. DULOXETINE [Concomitant]
     Active Substance: DULOXETINE
     Indication: Central pain syndrome
     Dosage: 60 MILLIGRAM, QD
     Route: 065
  3. PREGABALIN [Concomitant]
     Active Substance: PREGABALIN
     Indication: Central pain syndrome
     Dosage: 50 MILLIGRAM, BID
     Route: 065

REACTIONS (1)
  - Therapy non-responder [Recovering/Resolving]
